FAERS Safety Report 11891485 (Version 1)
Quarter: 2016Q1

REPORT INFORMATION
  Report Type: Spontaneous
  Country: GB (occurrence: GB)
  Receive Date: 20160106
  Receipt Date: 20160106
  Transmission Date: 20160526
  Serious: Yes (Other)
  Sender: FDA-Public Use
  Company Number: GB-WATSON-2015-28442

PATIENT
  Age: 52 Year
  Sex: Female
  Weight: 63.95 kg

DRUGS (1)
  1. PREDNISOLONE (UNKNOWN) [Suspect]
     Active Substance: PREDNISOLONE
     Indication: EAR DISORDER
     Dosage: 50 MG, UNKNOWN
     Route: 048
     Dates: start: 20151211, end: 20151214

REACTIONS (5)
  - Contusion [Unknown]
  - Withdrawal syndrome [Unknown]
  - Myalgia [Recovering/Resolving]
  - Depression [Recovering/Resolving]
  - Suicidal ideation [Unknown]

NARRATIVE: CASE EVENT DATE: 20151212
